FAERS Safety Report 20196814 (Version 2)
Quarter: 2021Q4

REPORT INFORMATION
  Report Type: Spontaneous
  Country: US (occurrence: US)
  Receive Date: 20211217
  Receipt Date: 20211217
  Transmission Date: 20220303
  Serious: Yes (Hospitalization)
  Sender: FDA-Public Use
  Company Number: US-CELGENE-USA-20211202955

PATIENT
  Age: 88 Year
  Sex: Female

DRUGS (1)
  1. REVLIMID [Suspect]
     Active Substance: LENALIDOMIDE
     Indication: Plasma cell myeloma
     Dosage: 15 MILLIGRAM
     Route: 048
     Dates: start: 20190225

REACTIONS (5)
  - Presyncope [Unknown]
  - Sinus bradycardia [Unknown]
  - Troponin [Unknown]
  - Left ventricular hypertrophy [Unknown]
  - Dizziness [Unknown]

NARRATIVE: CASE EVENT DATE: 20211127
